FAERS Safety Report 18101483 (Version 6)
Quarter: 2021Q1

REPORT INFORMATION
  Report Type: Report from Study
  Country: US (occurrence: US)
  Receive Date: 20200801
  Receipt Date: 20210226
  Transmission Date: 20210419
  Serious: No
  Sender: FDA-Public Use
  Company Number: NVSC2020US213532

PATIENT
  Sex: Female

DRUGS (5)
  1. ENTRESTO [Suspect]
     Active Substance: SACUBITRIL\VALSARTAN
     Dosage: 1 DF, QHS  (49/51MG 1 TAB AT NIGHT)
     Route: 065
  2. ENTRESTO [Suspect]
     Active Substance: SACUBITRIL\VALSARTAN
     Dosage: 0.5 DF,  (HALF TAB OF THE 49/51 MG DOSE IN THE AM)
     Route: 065
  3. NICOTINE. [Concomitant]
     Active Substance: NICOTINE
     Indication: SMOKING CESSATION THERAPY
     Dosage: UNK
     Route: 065
  4. WATER PILLS [Concomitant]
     Active Substance: UNSPECIFIED INGREDIENT
     Indication: PRODUCT USED FOR UNKNOWN INDICATION
     Dosage: UNK, QD
     Route: 065
  5. ENTRESTO [Suspect]
     Active Substance: SACUBITRIL\VALSARTAN
     Indication: CARDIAC FAILURE
     Dosage: UNK
     Route: 065

REACTIONS (16)
  - Hyponatraemia [Unknown]
  - Swelling [Unknown]
  - Depressed mood [Unknown]
  - Heart rate decreased [Unknown]
  - Hypotension [Unknown]
  - Dyspnoea [Not Recovered/Not Resolved]
  - Memory impairment [Unknown]
  - Weight increased [Unknown]
  - Weight decreased [Unknown]
  - Fatigue [Unknown]
  - Pain in extremity [Unknown]
  - Fluid retention [Unknown]
  - Dizziness [Unknown]
  - Blood potassium increased [Recovering/Resolving]
  - Vasodilatation [Unknown]
  - Wrong technique in product usage process [Unknown]
